FAERS Safety Report 23219290 (Version 1)
Quarter: 2023Q4

REPORT INFORMATION
  Report Type: Spontaneous
  Country: US (occurrence: None)
  Receive Date: 20231118
  Receipt Date: 20231118
  Transmission Date: 20240110
  Serious: Yes (Other)
  Sender: FDA-Public Use
  Company Number: None

PATIENT
  Age: 35 Year
  Sex: Female
  Weight: 50.4 kg

DRUGS (9)
  1. DIETARY SUPPLEMENT [Suspect]
     Active Substance: DIETARY SUPPLEMENT
     Indication: Product used for unknown indication
     Dosage: FREQUENCY : AT BEDTIME;?
     Route: 061
  2. NALTREXONE [Concomitant]
     Active Substance: NALTREXONE
  3. CROMOLYN [Concomitant]
     Active Substance: CROMOLYN
  4. BENADRYL [Concomitant]
     Active Substance: DIPHENHYDRAMINE HYDROCHLORIDE
  5. CYANOCOBALAMIN\DEXPANTHENOL\NIACINAMIDE\PYRIDOXINE HYDROCHLORIDE\RIBOF [Concomitant]
     Active Substance: CYANOCOBALAMIN\DEXPANTHENOL\NIACINAMIDE\PYRIDOXINE HYDROCHLORIDE\RIBOFLAVIN 5^-PHOSPHATE SODIUM\THIA
  6. MAGNESIUM [Concomitant]
     Active Substance: MAGNESIUM
  7. POTASSIUM [Suspect]
     Active Substance: POTASSIUM
  8. CAMU CAMU [Concomitant]
  9. UNSPECIFIED INGREDIENT [Concomitant]
     Active Substance: UNSPECIFIED INGREDIENT

REACTIONS (14)
  - Breast pain [None]
  - Abdominal pain upper [None]
  - Diarrhoea [None]
  - Gallbladder disorder [None]
  - Dizziness [None]
  - Headache [None]
  - Anxiety [None]
  - Brain fog [None]
  - Myalgia [None]
  - Insomnia [None]
  - Condition aggravated [None]
  - Product use complaint [None]
  - Incorrect dose administered [None]
  - Accidental overdose [None]

NARRATIVE: CASE EVENT DATE: 20231016
